FAERS Safety Report 14984273 (Version 1)
Quarter: 2018Q2

REPORT INFORMATION
  Report Type: Report from Study
  Country: FR (occurrence: FR)
  Receive Date: 20180607
  Receipt Date: 20180607
  Transmission Date: 20180711
  Serious: Yes (Death, Other)
  Sender: FDA-Public Use
  Company Number: FR-JAZZ-2018-FR-003629

PATIENT

DRUGS (1)
  1. DEFITELIO [Suspect]
     Active Substance: DEFIBROTIDE SODIUM
     Indication: PRODUCT USED FOR UNKNOWN INDICATION
     Dosage: 25 MG/KG, QD
     Dates: start: 20150325

REACTIONS (7)
  - Respiratory distress [Unknown]
  - Treatment failure [Unknown]
  - Renal ischaemia [Unknown]
  - Venoocclusive disease [Fatal]
  - Coagulopathy [Unknown]
  - Intestinal ischaemia [Unknown]
  - Nephropathy toxic [Fatal]

NARRATIVE: CASE EVENT DATE: 2015
